FAERS Safety Report 17321546 (Version 2)
Quarter: 2020Q1

REPORT INFORMATION
  Report Type: Spontaneous
  Country: JP (occurrence: JP)
  Receive Date: 20200127
  Receipt Date: 20200214
  Transmission Date: 20200409
  Serious: Yes (Death)
  Sender: FDA-Public Use
  Company Number: JP-ROCHE-2531755

PATIENT
  Age: 7 Decade
  Sex: Male

DRUGS (7)
  1. DOXORUBICIN HYDROCHLORIDE. [Concomitant]
     Active Substance: DOXORUBICIN HYDROCHLORIDE
     Dosage: DOSAGE IS UNCERTAIN.
     Route: 041
  2. PREDNISOLONE. [Concomitant]
     Active Substance: PREDNISOLONE
     Dosage: DOSAGE IS UNCERTAIN.
     Route: 048
  3. GAZYVA [Suspect]
     Active Substance: OBINUTUZUMAB
     Route: 041
     Dates: start: 20191211, end: 20191211
  4. GAZYVA [Suspect]
     Active Substance: OBINUTUZUMAB
     Indication: B-CELL LYMPHOMA
     Route: 041
     Dates: start: 20191204, end: 20191204
  5. GAZYVA [Suspect]
     Active Substance: OBINUTUZUMAB
     Route: 041
     Dates: start: 20191218, end: 20191218
  6. CYCLOPHOSPHAMIDE. [Concomitant]
     Active Substance: CYCLOPHOSPHAMIDE
     Dosage: DOSAGE IS UNCERTAIN.
     Route: 041
  7. VINCRISTINE SULFATE. [Concomitant]
     Active Substance: VINCRISTINE SULFATE
     Dosage: DOSAGE IS UNCERTAIN.
     Route: 041

REACTIONS (1)
  - Disease progression [Fatal]
